FAERS Safety Report 19867409 (Version 1)
Quarter: 2021Q3

REPORT INFORMATION
  Report Type: Spontaneous
  Country: US (occurrence: US)
  Receive Date: 20210922
  Receipt Date: 20210922
  Transmission Date: 20211014
  Serious: No
  Sender: FDA-Public Use
  Company Number: US-TEVA-2021-US-1946471

PATIENT
  Age: 37 Year
  Sex: Female
  Weight: 81.65 kg

DRUGS (3)
  1. AJOVY [Suspect]
     Active Substance: FREMANEZUMAB-VFRM
  2. AJOVY [Suspect]
     Active Substance: FREMANEZUMAB-VFRM
     Indication: MIGRAINE
     Route: 065
  3. CLOBETASOL [Concomitant]
     Active Substance: CLOBETASOL
     Indication: PSORIASIS
     Route: 065

REACTIONS (7)
  - Blood viscosity decreased [Unknown]
  - Impaired healing [Not Recovered/Not Resolved]
  - Epistaxis [Unknown]
  - Gingival bleeding [Unknown]
  - Dizziness [Unknown]
  - Malaise [Unknown]
  - Product dose omission issue [Unknown]
